FAERS Safety Report 13992532 (Version 1)
Quarter: 2017Q3

REPORT INFORMATION
  Report Type: Spontaneous
  Country: GB (occurrence: US)
  Receive Date: 20170920
  Receipt Date: 20170920
  Transmission Date: 20171128
  Serious: No
  Sender: FDA-Public Use
  Company Number: GB-RECKITT BENCKISER HEALTHCARE INT LIMITED-RB-91504-2016

PATIENT
  Sex: Male

DRUGS (1)
  1. MUCINEX MAXIMUM STRENGTH [Suspect]
     Active Substance: GUAIFENESIN
     Indication: PRODUCT USED FOR UNKNOWN INDICATION
     Dosage: UNK
     Route: 065
     Dates: start: 20161003

REACTIONS (1)
  - Headache [Unknown]

NARRATIVE: CASE EVENT DATE: 20161003
